FAERS Safety Report 15833325 (Version 1)
Quarter: 2019Q1

REPORT INFORMATION
  Report Type: Spontaneous
  Country: US (occurrence: US)
  Receive Date: 20190116
  Receipt Date: 20190116
  Transmission Date: 20190417
  Serious: No
  Sender: FDA-Public Use
  Company Number: US-OPTINOSE US, INC.-US-2018OPT000335

PATIENT
  Sex: Female

DRUGS (1)
  1. XHANCE [Suspect]
     Active Substance: FLUTICASONE PROPIONATE
     Indication: PRODUCT USED FOR UNKNOWN INDICATION
     Dosage: 186 ?G, BID (1 SPRAY EACH NOSTRIL BID)
     Route: 045
     Dates: start: 20181114

REACTIONS (4)
  - Dry mouth [Unknown]
  - Tongue disorder [Unknown]
  - Tongue discolouration [Unknown]
  - Upper-airway cough syndrome [Unknown]

NARRATIVE: CASE EVENT DATE: 2018
